FAERS Safety Report 22099257 (Version 1)
Quarter: 2023Q1

REPORT INFORMATION
  Report Type: Spontaneous
  Country: US (occurrence: None)
  Receive Date: 20230315
  Receipt Date: 20230315
  Transmission Date: 20230417
  Serious: Yes (Other)
  Sender: FDA-Public Use
  Company Number: None

PATIENT
  Age: 69 Year
  Sex: Male
  Weight: 67.5 kg

DRUGS (18)
  1. PAXLOVID [Suspect]
     Active Substance: NIRMATRELVIR\RITONAVIR
     Indication: COVID-19
     Dates: start: 20230111, end: 20230115
  2. BALSALAZIDE [Concomitant]
     Active Substance: BALSALAZIDE
  3. OMEPRAZOLE [Concomitant]
     Active Substance: OMEPRAZOLE
  4. ALFUZOSIN [Concomitant]
     Active Substance: ALFUZOSIN
  5. nasal mometasone [Concomitant]
  6. UNSPECIFIED INGREDIENT [Concomitant]
     Active Substance: UNSPECIFIED INGREDIENT
  7. VITAMINS [Concomitant]
     Active Substance: VITAMINS
  8. PARAFFIN [Concomitant]
     Active Substance: PARAFFIN
  9. QUERCETIN [Concomitant]
     Active Substance: QUERCETIN
  10. MAGNESIUM CITRATE [Concomitant]
     Active Substance: MAGNESIUM CITRATE
  11. CALCIUM CITRATE [Concomitant]
     Active Substance: CALCIUM CITRATE
  12. vitamin c complex [Concomitant]
  13. DIETARY SUPPLEMENT\GRAPE SEED EXTRACT [Concomitant]
     Active Substance: DIETARY SUPPLEMENT\GRAPE SEED EXTRACT
  14. BEE POLLEN [Concomitant]
     Active Substance: BEE POLLEN
  15. MENAQUINONE 6 [Concomitant]
     Active Substance: MENAQUINONE 6
  16. BIOTIN [Concomitant]
     Active Substance: BIOTIN
  17. GLUCOSAMINE [Concomitant]
     Active Substance: GLUCOSAMINE
  18. CHONDROITIN [Concomitant]
     Active Substance: CHONDROITIN

REACTIONS (2)
  - SARS-CoV-2 test positive [None]
  - COVID-19 [None]

NARRATIVE: CASE EVENT DATE: 20230118
